FAERS Safety Report 7487704-1 (Version None)
Quarter: 2011Q2

REPORT INFORMATION
  Report Type: 
  Country: None (occurrence: None)
  Receive Date: 20110511
  Receipt Date: 20110428
  Transmission Date: 20111010
  Serious: Yes (Death)
  Sender: FDA-Public Use
  Company Number: 2011CP000076

PATIENT
  Age: 73 Year
  Sex: Female

DRUGS (15)
  1. ACETAMINOPHEN [Suspect]
     Indication: ARTHRALGIA
     Dosage: 1 GM;4/1DAY;IV
     Route: 042
     Dates: start: 20110222, end: 20110223
  2. FERROUS SULFATE TAB [Suspect]
     Indication: ANAEMIA
     Dosage: 1 DOSAGE FORM;1 DAY;PO
     Route: 048
     Dates: start: 20110223, end: 20110301
  3. EUPRESSYL (URAPIDIL) (NO PREF. NAME) [Suspect]
     Indication: HYPERTENSION
     Dosage: 1 DOSAGE FORM;1 DAY;PO
     Route: 048
     Dates: end: 20110301
  4. HYDERGINE [Suspect]
     Indication: OSTEOARTHRITIS
     Dosage: 1 DOSAGE FORM;1 DAY;OP
     Route: 048
     Dates: end: 20110301
  5. PANTOPRAZOLE [Suspect]
     Dosage: 1 DOSAGE FORM;1 DAY;PO
     Route: 048
     Dates: end: 20110301
  6. TRAMADOL HCL [Suspect]
     Indication: ARTHRALGIA
     Dosage: 300 MG;1 DAY;IV
     Route: 042
     Dates: start: 20110222, end: 20110223
  7. XYZAL [Suspect]
     Dosage: 10 MG; PO
     Route: 048
     Dates: end: 20110301
  8. LASILIX (FUROSEMIDE) (NO PREF. NAME) [Suspect]
     Indication: HYPERTENSION
     Dosage: 1 DOSAGE FORM;1 DAY;PO
     Route: 048
     Dates: end: 20110301
  9. PRADAXA (DABIGATRAN ETEXILATE MESILATE) [Suspect]
     Indication: THROMBOSIS PROPHYLAXIS
     Dosage: 100 MCG;2/1 DAY;PO
     Route: 048
     Dates: start: 20110223, end: 20110228
  10. VALSARTAN [Suspect]
     Indication: HYPERTENSION
     Dosage: 1 DOSAGE FORM;1 DAY;PO
     Route: 048
     Dates: end: 20110301
  11. ACETAMINOPHEN [Suspect]
     Indication: ARTHRALGIA
     Dosage: 3 GM;1 DAY;PO
     Route: 048
     Dates: start: 20110224, end: 20110301
  12. LOVENOX [Suspect]
     Indication: THROMBOSIS PROPHYLAXIS
     Dosage: 1 DOSAGE FORM;1 DAY;SC
     Route: 058
     Dates: start: 20110222
  13. CELIPROLOL (CELIPROLOL) [Suspect]
     Indication: HYPERTENSION
     Dosage: 1 DOSAGE FORM;1 DAY; PO
     Route: 048
     Dates: end: 20110301
  14. ART 50 (DIACEREIN) (NO PREF. NAME) [Suspect]
     Indication: OSTEOARTHRITIS
     Dosage: 100 MG;1 DAY;PO
     Route: 047
     Dates: end: 20110301
  15. XANAX [Suspect]
     Indication: ANXIETY
     Dosage: 1 DOSAGE FORM;1 DAY;PO
     Route: 048
     Dates: end: 20110301

REACTIONS (2)
  - CARDIO-RESPIRATORY ARREST [None]
  - SUDDEN DEATH [None]
